FAERS Safety Report 24940255 (Version 3)
Quarter: 2025Q1

REPORT INFORMATION
  Report Type: Spontaneous
  Country: US (occurrence: US)
  Receive Date: 20250207
  Receipt Date: 20250318
  Transmission Date: 20250409
  Serious: Yes (Hospitalization, Other)
  Sender: NOVO NORDISK
  Company Number: US-NOVOPROD-1364853

PATIENT
  Age: 81 Year
  Sex: Female

DRUGS (4)
  1. TRESIBA [Suspect]
     Active Substance: INSULIN DEGLUDEC
     Indication: Type 2 diabetes mellitus
     Dosage: 42 UNITS, QD
     Route: 058
  2. TRESIBA [Suspect]
     Active Substance: INSULIN DEGLUDEC
     Dosage: 42 UNK
     Route: 058
  3. NOVOLOG [Suspect]
     Active Substance: INSULIN ASPART
     Dosage: 23 UNITS 3 TIMES DAILY/AS NEEDED (69UNITS MIN -80 UNITS MAX DAILY)
     Route: 058
     Dates: start: 2019
  4. NOVOLOG [Suspect]
     Active Substance: INSULIN ASPART
     Indication: Type 2 diabetes mellitus
     Dosage: 23 UNITS 3 TIMES DAILY/AS NEEDED (69UNITS MIN -80 UNITS MAX DAILY)
     Route: 058
     Dates: start: 2019

REACTIONS (8)
  - Cerebrovascular accident [Recovering/Resolving]
  - Seizure [Recovering/Resolving]
  - Adverse reaction [Recovering/Resolving]
  - Renal disorder [Unknown]
  - Condition aggravated [Unknown]
  - Blood glucose decreased [Recovering/Resolving]
  - Intentional product use issue [Unknown]
  - Blood glucose increased [Recovering/Resolving]

NARRATIVE: CASE EVENT DATE: 20250127
